FAERS Safety Report 23641470 (Version 1)
Quarter: 2024Q1

REPORT INFORMATION
  Report Type: Spontaneous
  Country: US (occurrence: US)
  Receive Date: 20240318
  Receipt Date: 20240318
  Transmission Date: 20240410
  Serious: No
  Sender: FDA-Public Use
  Company Number: US-ESPERIONTHERAPEUTICS-2023USA00293

PATIENT
  Age: 71 Year
  Sex: Female
  Weight: 64.853 kg

DRUGS (8)
  1. NEXLETOL [Suspect]
     Active Substance: BEMPEDOIC ACID
     Indication: Blood cholesterol increased
     Dosage: 180 MILLIGRAM, QD
     Route: 048
     Dates: start: 202303, end: 20230323
  2. LOSARTAN [Concomitant]
     Active Substance: LOSARTAN
     Dosage: 50 MILLIGRAM, 2 TO 3 TIMES PER DAY
     Route: 065
  3. PAROXETINE HYDROCHLORIDE [Concomitant]
     Active Substance: PAROXETINE HYDROCHLORIDE\PAROXETINE HYDROCHLORIDE ANHYDROUS
     Dosage: 1 TABLET, QD
     Route: 065
  4. VITAMINS [Concomitant]
     Active Substance: VITAMINS
     Dosage: UNK, QD
     Route: 065
  5. CALCIUM WITH D3 [Concomitant]
     Dosage: UNKNOWN
     Route: 065
  6. FISH OIL [Concomitant]
     Active Substance: FISH OIL
     Dosage: UNKNOWN
     Route: 065
  7. MAGNESIUM [Concomitant]
     Active Substance: MAGNESIUM
     Dosage: UNK, QD
     Route: 065
  8. SPRING VALLEY PROBIOTIC MULTI ENZYME [Concomitant]
     Dosage: UNK, QD
     Route: 065

REACTIONS (5)
  - Dizziness [Unknown]
  - Vision blurred [Not Recovered/Not Resolved]
  - Vitreous floaters [Recovered/Resolved]
  - Blood pressure increased [Not Recovered/Not Resolved]
  - Ocular discomfort [Recovering/Resolving]

NARRATIVE: CASE EVENT DATE: 20230301
